FAERS Safety Report 17235224 (Version 1)
Quarter: 2020Q1

REPORT INFORMATION
  Report Type: Report from Study
  Country: US (occurrence: US)
  Receive Date: 20200106
  Receipt Date: 20200106
  Transmission Date: 20200409
  Serious: Yes (Other)
  Sender: FDA-Public Use
  Company Number: US-ROCHE-2509358

PATIENT

DRUGS (10)
  1. IMIPRAMINE [Suspect]
     Active Substance: IMIPRAMINE
     Indication: MENTAL DISORDER
     Route: 065
  2. OXAZEPAM. [Suspect]
     Active Substance: OXAZEPAM
     Indication: MENTAL DISORDER
     Route: 065
  3. TRIFLUOPERAZINE [Suspect]
     Active Substance: TRIFLUOPERAZINE HYDROCHLORIDE
     Indication: MENTAL DISORDER
     Route: 065
  4. MEPROBAMATE. [Suspect]
     Active Substance: MEPROBAMATE
     Indication: MENTAL DISORDER
     Route: 065
  5. AMITRIPTYLINE [Suspect]
     Active Substance: AMITRIPTYLINE
     Indication: MENTAL DISORDER
     Route: 065
  6. NORTRIPTYLINE [Suspect]
     Active Substance: NORTRIPTYLINE
     Indication: MENTAL DISORDER
     Route: 065
  7. CHLORPROMAZINE. [Suspect]
     Active Substance: CHLORPROMAZINE
     Indication: MENTAL DISORDER
     Route: 065
  8. CHLORDIAZEPOXIDE. [Suspect]
     Active Substance: CHLORDIAZEPOXIDE
     Indication: MENTAL DISORDER
     Route: 065
  9. THIORIDAZINE [Suspect]
     Active Substance: THIORIDAZINE
     Indication: MENTAL DISORDER
     Route: 065
  10. DIAZEPAM. [Suspect]
     Active Substance: DIAZEPAM
     Indication: MENTAL DISORDER
     Route: 065

REACTIONS (1)
  - Leukopenia [Unknown]
